FAERS Safety Report 13678028 (Version 2)
Quarter: 2017Q3

REPORT INFORMATION
  Report Type: Spontaneous
  Country: FR (occurrence: FR)
  Receive Date: 20170622
  Receipt Date: 20170717
  Transmission Date: 20171127
  Serious: Yes (Other)
  Sender: FDA-Public Use
  Company Number: FR-JNJFOC-20170616222

PATIENT
  Age: 62 Year
  Weight: 90 kg

DRUGS (7)
  1. DOLIPRANE [Concomitant]
     Active Substance: ACETAMINOPHEN
     Route: 065
  2. TAHOR [Concomitant]
     Active Substance: ATORVASTATIN CALCIUM
     Route: 065
  3. ADENURIC [Concomitant]
     Active Substance: FEBUXOSTAT
     Route: 065
  4. STELARA [Suspect]
     Active Substance: USTEKINUMAB
     Indication: PSORIATIC ARTHROPATHY
     Dosage: INITIATED FROM MORE THAN 6 MONTHS
     Route: 058
     Dates: start: 20161114, end: 20170315
  5. GLUCOPHAGE [Concomitant]
     Active Substance: METFORMIN HYDROCHLORIDE
     Route: 065
  6. DIAMICRON [Concomitant]
     Active Substance: GLICLAZIDE
     Route: 065
  7. FORLAX [Concomitant]
     Active Substance: POLYETHYLENE GLYCOL 4000
     Route: 065

REACTIONS (1)
  - Renal cell carcinoma recurrent [Unknown]

NARRATIVE: CASE EVENT DATE: 201705
